FAERS Safety Report 5259376-8 (Version None)
Quarter: 2007Q1

REPORT INFORMATION
  Report Type: 
  Country: None (occurrence: None)
  Receive Date: 20070305
  Receipt Date: 20070220
  Transmission Date: 20070707
  Serious: Yes (Disabling)
  Sender: FDA-Public Use
  Company Number: OSCN-NO-0702S-0069

PATIENT
  Age: 45 Year
  Sex: Female
  Weight: 59 kg

DRUGS (21)
  1. OMNISCAN [Suspect]
     Indication: DRUG USE FOR UNKNOWN INDICATION
     Dosage: SEE IMAGE
     Dates: start: 20060922, end: 20060922
  2. OMNISCAN [Suspect]
     Indication: DRUG USE FOR UNKNOWN INDICATION
     Dosage: SEE IMAGE
     Dates: start: 20061004, end: 20061004
  3. OMNISCAN [Suspect]
     Indication: DRUG USE FOR UNKNOWN INDICATION
     Dosage: SEE IMAGE
     Dates: start: 20061219, end: 20061219
  4. LYNESTRENOL [Concomitant]
  5. METOPROLOL SUCCINATE [Concomitant]
  6. PAROXETINE HYDROCHLORIDE [Concomitant]
  7. OMEPRAZOLE [Concomitant]
  8. ACETYLASALICYLIC ACID (ACETYLSALICYLSAEURE) [Concomitant]
  9. CALCIUM CARBONAT [Concomitant]
  10. ATORVASTATIN CALCIUM [Concomitant]
  11. ALUMINUM HYDROXID GEL [Concomitant]
  12. FOLSAEURE [Concomitant]
  13. SUCRALFATE [Concomitant]
  14. TRAMADOL HYDR GTT [Concomitant]
  15. METOCLOPRAMID GTT [Concomitant]
  16. NIFEDIPINE [Concomitant]
  17. MOLSIDOMIN [Concomitant]
  18. THIAMIN, RIBOFLAVIN, NICOTINAMIDE [Concomitant]
  19. EPOETIN BETA [Concomitant]
  20. ALFACALCIDOL [Concomitant]
  21. GABAPENTIN [Concomitant]

REACTIONS (1)
  - NEPHROGENIC FIBROSING DERMOPATHY [None]
